FAERS Safety Report 4619275-9 (Version None)
Quarter: 2005Q1

REPORT INFORMATION
  Report Type: 
  Country: None (occurrence: None)
  Receive Date: 20050325
  Receipt Date: 20050318
  Transmission Date: 20050727
  Serious: Yes (Other)
  Sender: FDA-Public Use
  Company Number: US-MERCK-0503USA03316

PATIENT
  Age: 66 Year
  Sex: Female

DRUGS (7)
  1. FOSAMAX [Suspect]
     Indication: OSTEOPENIA
     Route: 048
  2. KEPPRA [Suspect]
     Indication: PETIT MAL EPILEPSY
     Route: 048
     Dates: start: 20050101, end: 20050101
  3. KEPPRA [Suspect]
     Route: 048
     Dates: start: 20050101
  4. KEPPRA [Suspect]
     Route: 048
     Dates: start: 20050101, end: 20050101
  5. KEPPRA [Suspect]
     Route: 048
     Dates: start: 20050101, end: 20050101
  6. XANAX [Concomitant]
     Route: 048
     Dates: start: 19990101
  7. CARBATROL [Suspect]
     Route: 065

REACTIONS (2)
  - DRUG INTERACTION [None]
  - PETIT MAL EPILEPSY [None]
